FAERS Safety Report 5481208-3 (Version None)
Quarter: 2007Q4

REPORT INFORMATION
  Report Type: 
  Country: None (occurrence: None)
  Receive Date: 20071010
  Receipt Date: 20071002
  Transmission Date: 20080405
  Serious: Yes (Hospitalization)
  Sender: FDA-Public Use
  Company Number: PHBS2007GB16556

PATIENT
  Age: 33 Year
  Sex: Female

DRUGS (9)
  1. OXYTOCIN [Suspect]
     Dosage: 0.25 IU FOLLOWED BY FURTHER 0.25 IU
  2. PROSTACYCLIN [Concomitant]
     Dosage: 4 NG/KG/MIN
     Route: 042
  3. PROSTACYCLIN [Concomitant]
     Dosage: 6 NG/KG/MIN
     Route: 042
  4. HEPARIN [Concomitant]
  5. MIDAZOLAM HCL [Concomitant]
     Dosage: 1 MG, UNK
  6. FENTANYL [Concomitant]
     Dosage: 350 UG, UNK
  7. THIOPENTONE [Concomitant]
     Dosage: 175 MG, UNK
  8. SUXAMETHONIUM [Concomitant]
     Dosage: 100 MG, UNK
  9. SEVOFLURANE [Concomitant]

REACTIONS (4)
  - ACUTE RIGHT VENTRICULAR FAILURE [None]
  - HYPOTENSION [None]
  - PULMONARY ARTERIAL PRESSURE INCREASED [None]
  - RIGHT ATRIAL PRESSURE INCREASED [None]
